FAERS Safety Report 26192805 (Version 1)
Quarter: 2025Q4

REPORT INFORMATION
  Report Type: Spontaneous
  Country: MY (occurrence: MY)
  Receive Date: 20251223
  Receipt Date: 20251223
  Transmission Date: 20260119
  Serious: Yes (Life-Threatening, Other)
  Sender: PFIZER
  Company Number: MY-PFIZER INC-PV202500149502

PATIENT
  Age: 42 Year
  Sex: Male

DRUGS (1)
  1. LORLATINIB [Suspect]
     Active Substance: LORLATINIB
     Dosage: 100 MG, 1X/DAY

REACTIONS (6)
  - Hyperlipidaemia [Unknown]
  - Neuropathy peripheral [Unknown]
  - Weight increased [Unknown]
  - Hypercholesterolaemia [Unknown]
  - Oedema [Unknown]
  - Hypertransaminasaemia [Unknown]
